FAERS Safety Report 24925761 (Version 1)
Quarter: 2025Q1

REPORT INFORMATION
  Report Type: Spontaneous
  Country: CN (occurrence: CN)
  Receive Date: 20250204
  Receipt Date: 20250204
  Transmission Date: 20250408
  Serious: Yes (Other)
  Sender: EMD SERONO INC
  Company Number: CN-Merck Healthcare KGaA-2025004511

PATIENT
  Age: 9 Decade
  Sex: Male

DRUGS (1)
  1. TEPOTINIB [Suspect]
     Active Substance: TEPOTINIB
     Indication: Non-small cell lung cancer

REACTIONS (1)
  - Haematemesis [Unknown]
